FAERS Safety Report 8823421 (Version 1)
Quarter: 2012Q4

REPORT INFORMATION
  Report Type: 
  Country: US (occurrence: US)
  Receive Date: 20121003
  Receipt Date: 20121003
  Transmission Date: 20130627
  Serious: Yes (Hospitalization, Other)
  Sender: FDA-Public Use
  Company Number: US-BAYER-2012-090287

PATIENT
  Age: 84 Year
  Sex: Male
  Weight: 84.82 kg

DRUGS (11)
  1. XARELTO [Suspect]
     Indication: CEREBROVASCULAR ACCIDENT PROPHYLAXIS
     Dosage: 20 mg, QD
     Route: 048
     Dates: start: 20120628, end: 20120714
  2. XARELTO [Interacting]
     Indication: ATRIAL FIBRILLATION
  3. ACETYLSALICYLIC ACID({=100 MG) [Interacting]
     Indication: ANTIPLATELET THERAPY
     Dosage: 81 mg, UNK
  4. LANTUS [Concomitant]
     Dosage: UNK
  5. HUMALOG [Concomitant]
     Dosage: UNK
  6. ZETIA [Concomitant]
     Dosage: 10 mg, UNK
  7. PRAVASTATIN [Concomitant]
     Dosage: 80 mg, UNK
  8. OMEPRAZOLE [Concomitant]
     Dosage: 40 mg, UNK
  9. LEVOXYL [Concomitant]
     Dosage: 112 ?g, UNK
  10. DIOVAN [Concomitant]
     Dosage: 40 mg, UNK
  11. NIASPAN [Concomitant]
     Dosage: 500 mg, UNK

REACTIONS (8)
  - Small intestinal haemorrhage [Recovering/Resolving]
  - Haemoglobin decreased [None]
  - Haematocrit decreased [None]
  - Platelet count decreased [None]
  - Blood urea increased [None]
  - Dizziness [None]
  - Small intestinal haemorrhage [None]
  - Blood creatinine increased [None]
